FAERS Safety Report 7949355-1 (Version None)
Quarter: 2011Q4

REPORT INFORMATION
  Report Type: 
  Country: None (occurrence: None)
  Receive Date: 20111130
  Receipt Date: 20111122
  Transmission Date: 20120403
  Serious: Yes (Hospitalization)
  Sender: FDA-Public Use
  Company Number: US-GLAXOSMITHKLINE-A0797826A

PATIENT
  Age: 65 Year
  Sex: Male
  Weight: 89.5 kg

DRUGS (7)
  1. GEMFIBROZIL [Concomitant]
  2. NIFEDIPINE [Concomitant]
  3. AVANDIA [Suspect]
     Indication: DIABETES MELLITUS
     Route: 048
     Dates: start: 20000601, end: 20070601
  4. AVANDARYL [Suspect]
     Indication: TYPE 2 DIABETES MELLITUS
     Route: 048
     Dates: start: 20070701, end: 20090101
  5. METFORMIN HCL [Concomitant]
  6. MICARDIS [Concomitant]
  7. GLIPIZIDE [Concomitant]

REACTIONS (6)
  - CARDIAC DISORDER [None]
  - CORONARY ARTERY DISEASE [None]
  - CAROTID ARTERY STENOSIS [None]
  - ISCHAEMIC CARDIOMYOPATHY [None]
  - POSTPERICARDIOTOMY SYNDROME [None]
  - MYOCARDIAL INFARCTION [None]
